FAERS Safety Report 6554252-2 (Version None)
Quarter: 2010Q1

REPORT INFORMATION
  Report Type: 
  Country: None (occurrence: None)
  Receive Date: 20100127
  Receipt Date: 20100118
  Transmission Date: 20100710
  Serious: Yes (Death, Life-Threatening, Hospitalization)
  Sender: FDA-Public Use
  Company Number: JP-ABBOTT-09P-087-0604577-00

PATIENT
  Sex: Male
  Weight: 72 kg

DRUGS (5)
  1. CLARITH [Suspect]
     Indication: CHRONIC SINUSITIS
     Route: 048
     Dates: start: 20090406, end: 20090427
  2. CLARITH [Suspect]
     Route: 048
     Dates: start: 20090428, end: 20090824
  3. MUCODYNE [Suspect]
     Indication: CHRONIC SINUSITIS
     Route: 048
     Dates: start: 20090416, end: 20090928
  4. CELESTAMINE TAB [Concomitant]
     Indication: RHINITIS ALLERGIC
     Route: 048
     Dates: start: 20090416, end: 20090629
  5. PURSENNID [Concomitant]
     Indication: CONSTIPATION
     Dosage: 24 MG DAILY
     Route: 048

REACTIONS (2)
  - HEPATIC FAILURE [None]
  - JAUNDICE [None]
